FAERS Safety Report 7964862-3 (Version None)
Quarter: 2011Q4

REPORT INFORMATION
  Report Type: 
  Country: None (occurrence: None)
  Receive Date: 20111208
  Receipt Date: 20111028
  Transmission Date: 20120403
  Serious: Yes (Death, Other)
  Sender: FDA-Public Use
  Company Number: DZ-ROCHE-1012792

PATIENT
  Age: 56 Year
  Sex: Female

DRUGS (2)
  1. COPEGUS [Suspect]
     Indication: HEPATITIS C
     Dates: start: 20101027
  2. PEGASYS [Suspect]
     Indication: HEPATITIS C
     Dates: start: 20101027

REACTIONS (9)
  - WHITE BLOOD CELL COUNT DECREASED [None]
  - ANAEMIA [None]
  - MUSCULOSKELETAL PAIN [None]
  - DECREASED APPETITE [None]
  - PYREXIA [None]
  - NEUTROPHIL COUNT DECREASED [None]
  - ABDOMINAL PAIN [None]
  - PLATELET COUNT DECREASED [None]
  - ASTHENIA [None]
